FAERS Safety Report 14479688 (Version 1)
Quarter: 2018Q1

REPORT INFORMATION
  Report Type: Spontaneous
  Country: JP (occurrence: JP)
  Receive Date: 20180202
  Receipt Date: 20180202
  Transmission Date: 20180509
  Serious: Yes (Other)
  Sender: FDA-Public Use
  Company Number: PHJP2018JP002161

PATIENT

DRUGS (1)
  1. NEORAL [Suspect]
     Active Substance: CYCLOSPORINE
     Indication: NEPHROTIC SYNDROME
     Dosage: 100 MG, QD, BEFORE BREAKFAST
     Route: 048

REACTIONS (2)
  - Ileus [Unknown]
  - Dysphagia [Unknown]
